FAERS Safety Report 23539533 (Version 1)
Quarter: 2024Q1

REPORT INFORMATION
  Report Type: Spontaneous
  Country: US (occurrence: US)
  Receive Date: 20240219
  Receipt Date: 20240219
  Transmission Date: 20240409
  Serious: Yes (Hospitalization, Other)
  Sender: FDA-Public Use
  Company Number: US-BRISTOL-MYERS SQUIBB COMPANY-2024-026498

PATIENT
  Age: 72 Year
  Sex: Female

DRUGS (1)
  1. LENALIDOMIDE [Suspect]
     Active Substance: LENALIDOMIDE
     Indication: Plasma cell myeloma
     Dosage: D1-21 Q 28 DAY
     Route: 048
     Dates: start: 20230601, end: 202312

REACTIONS (2)
  - Bacterial colitis [Recovered/Resolved]
  - Oral fungal infection [Recovered/Resolved]
